FAERS Safety Report 23297242 (Version 4)
Quarter: 2024Q1

REPORT INFORMATION
  Report Type: Spontaneous
  Country: FR (occurrence: FR)
  Receive Date: 20231214
  Receipt Date: 20240220
  Transmission Date: 20240410
  Serious: No
  Sender: FDA-Public Use
  Company Number: FR-PFIZER INC-202300414560

PATIENT
  Age: 64 Year
  Sex: Female
  Weight: 74 kg

DRUGS (1)
  1. ENBREL [Suspect]
     Active Substance: ETANERCEPT
     Indication: Ankylosing spondylitis
     Dosage: 50 MG, ONCE A WEEK
     Dates: start: 2006

REACTIONS (3)
  - Needle issue [Not Recovered/Not Resolved]
  - Injection site pain [Unknown]
  - Injection site mass [Unknown]
